FAERS Safety Report 5682791-5 (Version None)
Quarter: 2008Q1

REPORT INFORMATION
  Report Type: 
  Country: None (occurrence: None)
  Receive Date: 20080327
  Receipt Date: 20080318
  Transmission Date: 20080703
  Serious: Yes (Other)
  Sender: FDA-Public Use
  Company Number: US-ROCHE-544674

PATIENT
  Age: 28 Year
  Sex: Male
  Weight: 80.3 kg

DRUGS (1)
  1. TAMIFLU [Suspect]
     Dosage: THE PATIENT WAS TAKING TAMIFLU 75 MG TWICE A DAY FOR 5 DAYS
     Route: 065
     Dates: start: 20080115, end: 20080117

REACTIONS (7)
  - ABNORMAL DREAMS [None]
  - AGITATION [None]
  - BODY TEMPERATURE INCREASED [None]
  - EXAGGERATED STARTLE RESPONSE [None]
  - HALLUCINATION, AUDITORY [None]
  - HALLUCINATION, VISUAL [None]
  - PHOTOPHOBIA [None]
